FAERS Safety Report 5429589-0 (Version None)
Quarter: 2007Q3

REPORT INFORMATION
  Report Type: 
  Country: None (occurrence: None)
  Receive Date: 20070829
  Receipt Date: 20070817
  Transmission Date: 20080115
  Serious: Yes (Hospitalization)
  Sender: FDA-Public Use
  Company Number: BE-ROCHE-506215

PATIENT
  Age: 13 Year
  Sex: Female
  Weight: 53 kg

DRUGS (2)
  1. ISOTRETINOIN [Suspect]
     Indication: DRUG USE FOR UNKNOWN INDICATION
     Dosage: STRENGTH AND FORMULATION REPORTED AS 20 MG. FREQUENCY REPORTED AS DAILY.
     Route: 048
     Dates: start: 20061215
  2. ISOTRETINOIN [Suspect]
     Route: 048

REACTIONS (1)
  - BREAST CYST [None]
